FAERS Safety Report 7992704-9 (Version None)
Quarter: 2011Q4

REPORT INFORMATION
  Report Type: 
  Country: None (occurrence: None)
  Receive Date: 20111219
  Receipt Date: 20110331
  Transmission Date: 20120403
  Serious: No
  Sender: FDA-Public Use
  Company Number: US-ASTRAZENECA-2011SE18335

PATIENT
  Sex: Female

DRUGS (6)
  1. CALCIUM CARBONATE [Concomitant]
  2. CRESTOR [Suspect]
     Route: 048
     Dates: start: 20020101
  3. COLECALCIFEROL [Concomitant]
  4. FISH OIL [Concomitant]
  5. NIASPAN [Suspect]
     Route: 065
     Dates: start: 20110106
  6. NIASPAN [Suspect]
     Indication: LOW DENSITY LIPOPROTEIN INCREASED
     Dates: start: 20100317, end: 20101229

REACTIONS (5)
  - FLUSHING [None]
  - MYALGIA [None]
  - RASH [None]
  - BONE PAIN [None]
  - PAIN IN EXTREMITY [None]
